FAERS Safety Report 8155967-5 (Version None)
Quarter: 2012Q1

REPORT INFORMATION
  Report Type: 
  Country: None (occurrence: None)
  Receive Date: 20120103
  Receipt Date: 20110823
  Transmission Date: 20120608
  Serious: No
  Sender: FDA-Public Use
  Company Number: AE-2011-000902

PATIENT
  Age: 50 Year
  Sex: Male
  Weight: 61.6892 kg

DRUGS (4)
  1. RIBAVIRIN [Concomitant]
  2. INCIVEK [Suspect]
     Dosage: 2250 MG (750 MG, 3 IN 1 D)
     Dates: start: 20110813
  3. PEGASYS [Concomitant]
  4. MELOXICAM [Concomitant]

REACTIONS (2)
  - DIARRHOEA [None]
  - ANORECTAL DISCOMFORT [None]
